FAERS Safety Report 22269173 (Version 1)
Quarter: 2023Q2

REPORT INFORMATION
  Report Type: Report from Study
  Country: US (occurrence: None)
  Receive Date: 20230501
  Receipt Date: 20230501
  Transmission Date: 20230721
  Serious: Yes (Other)
  Sender: FDA-Public Use
  Company Number: US-ROCHE-3338830

PATIENT
  Age: 75 Year
  Sex: Female
  Weight: 48.4 kg

DRUGS (3)
  1. VENETOCLAX [Suspect]
     Active Substance: VENETOCLAX
     Indication: Chronic lymphocytic leukaemia
     Dosage: DAYS 1-7 CYCLE 3,?50 MG PO QD DAYS 8-14, CYCLE 3, 100 MG PO QD DAYS 15- 21, CYCLE 3, 200 MG PO QD DA
     Route: 048
     Dates: start: 20220713
  2. OBINUTUZUMAB [Suspect]
     Active Substance: OBINUTUZUMAB
     Indication: Chronic lymphocytic leukaemia
     Dosage: 900 MG IV ON C1D2, 1000 MG IV ON C1D8 + C1D15, C2-6D1?LAST ADMINISTERED DATE 14/DEC/2022
     Route: 042
     Dates: start: 20220713
  3. IBRUTINIB [Suspect]
     Active Substance: IBRUTINIB
     Indication: Chronic lymphocytic leukaemia
     Dosage: FOR 15 CYCLES ?TOTAL DOSE ADMINISTERED 35280 MG, ?LAST ADMINISTERED DATE 07/MAR/2023
     Route: 048
     Dates: start: 20220713

REACTIONS (1)
  - White blood cell count decreased [Not Recovered/Not Resolved]

NARRATIVE: CASE EVENT DATE: 20230308
